FAERS Safety Report 5979584-8 (Version None)
Quarter: 2008Q4

REPORT INFORMATION
  Report Type: 
  Country: None (occurrence: None)
  Receive Date: 20081204
  Receipt Date: 20081201
  Transmission Date: 20090506
  Serious: Yes (Hospitalization)
  Sender: FDA-Public Use
  Company Number: FR-ASTRAZENECA-2008CG01764

PATIENT
  Age: 921 Month
  Sex: Female

DRUGS (23)
  1. NEXIUM [Suspect]
     Route: 048
     Dates: start: 20080101
  2. ELISOR [Suspect]
     Route: 048
     Dates: start: 20080501, end: 20080711
  3. SECTRAL [Suspect]
     Route: 048
  4. SECTRAL [Suspect]
     Route: 048
     Dates: start: 20080501
  5. LOXEN [Concomitant]
     Route: 048
  6. LASIX [Concomitant]
     Route: 048
     Dates: start: 20080101
  7. EUPRESSYL [Concomitant]
     Route: 048
     Dates: start: 20080101
  8. SEROPRAM [Concomitant]
     Route: 048
     Dates: start: 20080101
  9. ATARAX [Concomitant]
     Route: 048
     Dates: start: 20080101
  10. PLAVIX [Concomitant]
     Route: 048
     Dates: start: 20080101
  11. KARDEGIC [Concomitant]
     Route: 048
  12. APROVEL [Concomitant]
     Route: 048
     Dates: start: 20080101, end: 20080711
  13. VASTAREL [Concomitant]
     Route: 048
     Dates: start: 20080101
  14. AMLOD [Concomitant]
  15. CORVASAL [Concomitant]
  16. LEXOMIL [Concomitant]
  17. TAREG [Concomitant]
  18. LEVOTHYROX [Concomitant]
     Dates: start: 20080101
  19. CORDARONE [Concomitant]
     Dates: start: 20080101
  20. CORTANCYL [Concomitant]
     Dates: start: 20080101
  21. CALCIDIA [Concomitant]
     Dates: start: 20080101
  22. INIPOMP [Concomitant]
     Dates: start: 20080101
  23. 1 ALPHA [Concomitant]
     Dates: start: 20080101

REACTIONS (1)
  - DERMATITIS EXFOLIATIVE [None]
